FAERS Safety Report 6600201-8 (Version None)
Quarter: 2010Q1

REPORT INFORMATION
  Report Type: 
  Country: None (occurrence: None)
  Receive Date: 20100224
  Receipt Date: 20100217
  Transmission Date: 20100710
  Serious: Yes (Hospitalization)
  Sender: FDA-Public Use
  Company Number: B0634746A

PATIENT
  Sex: Female
  Weight: 69 kg

DRUGS (9)
  1. TYKERB [Suspect]
     Indication: BREAST CANCER
     Route: 048
     Dates: start: 20090903, end: 20091225
  2. CAPECITABINE [Suspect]
     Route: 048
     Dates: start: 20090903, end: 20091125
  3. PURSENNID [Suspect]
     Indication: CONSTIPATION
     Route: 048
  4. TOREMIFENE [Concomitant]
     Route: 048
  5. ZOMETA [Concomitant]
  6. UNKNOWN DRUG [Concomitant]
     Indication: CANCER PAIN
     Route: 048
  7. P GUARD [Concomitant]
     Indication: CANCER PAIN
     Route: 048
  8. LOXONIN [Concomitant]
     Indication: CANCER PAIN
     Route: 048
  9. MAGNESIUM OXIDE [Concomitant]
     Indication: CONSTIPATION
     Route: 048

REACTIONS (3)
  - FACE OEDEMA [None]
  - PRURITUS [None]
  - SWELLING [None]
